FAERS Safety Report 5562735-7 (Version None)
Quarter: 2007Q4

REPORT INFORMATION
  Report Type: 
  Country: None (occurrence: None)
  Receive Date: 20071217
  Receipt Date: 20071206
  Transmission Date: 20080405
  Serious: Yes (Other)
  Sender: FDA-Public Use
  Company Number: PHEH2007US15508

PATIENT
  Age: 17 Year
  Sex: Female

DRUGS (4)
  1. TOBI [Suspect]
     Indication: PSEUDOMONAS INFECTION
     Dosage: UNK, UNK
     Dates: start: 20020101, end: 20050101
  2. BACTRIM [Concomitant]
  3. ENZYMES [Concomitant]
  4. SODIUM CHLORIDE 0.9% [Concomitant]

REACTIONS (5)
  - COUGH [None]
  - DISEASE PROGRESSION [None]
  - HYPERSENSITIVITY [None]
  - PRURITUS [None]
  - THROAT TIGHTNESS [None]
